FAERS Safety Report 5627335-9 (Version None)
Quarter: 2008Q1

REPORT INFORMATION
  Report Type: 
  Country: None (occurrence: None)
  Receive Date: 20080215
  Receipt Date: 20080206
  Transmission Date: 20080703
  Serious: Yes (Other)
  Sender: FDA-Public Use
  Company Number: US-JNJFOC-20080201963

PATIENT
  Sex: Female
  Weight: 95.26 kg

DRUGS (3)
  1. FENTANYL TRANSDERMAL SYSTEM [Suspect]
     Indication: SCIATICA
     Route: 062
  2. SOMA [Concomitant]
     Indication: HYPOTONIA
     Route: 048
  3. TOPAMAX [Concomitant]
     Indication: NEURALGIA
     Route: 048

REACTIONS (8)
  - DYSPNOEA [None]
  - EMOTIONAL DISORDER [None]
  - EXOPHTHALMOS [None]
  - FEELING ABNORMAL [None]
  - HEADACHE [None]
  - INCORRECT DRUG ADMINISTRATION DURATION [None]
  - OEDEMA PERIPHERAL [None]
  - VISION BLURRED [None]
